FAERS Safety Report 11517997 (Version 1)
Quarter: 2015Q3

REPORT INFORMATION
  Report Type: Spontaneous
  Country: JP (occurrence: JP)
  Receive Date: 20150917
  Receipt Date: 20150917
  Transmission Date: 20151125
  Serious: Yes (Other)
  Sender: FDA-Public Use
  Company Number: JP-PFIZER INC-2015303666

PATIENT
  Age: 90 Year
  Sex: Male

DRUGS (2)
  1. MOHRUS [Suspect]
     Active Substance: KETOPROFEN
     Indication: SCIATICA
     Dosage: UNK
     Dates: start: 20150804, end: 20150808
  2. LYRICA [Suspect]
     Active Substance: PREGABALIN
     Indication: SCIATICA
     Dosage: 25 MG, 1X/DAY
     Route: 048
     Dates: start: 20150804, end: 20150808

REACTIONS (2)
  - Exfoliative rash [Recovering/Resolving]
  - Inflammation [Recovering/Resolving]

NARRATIVE: CASE EVENT DATE: 20150808
